FAERS Safety Report 25210453 (Version 6)
Quarter: 2025Q4

REPORT INFORMATION
  Report Type: Spontaneous
  Country: US (occurrence: US)
  Receive Date: 20250417
  Receipt Date: 20251202
  Transmission Date: 20260118
  Serious: No
  Sender: PFIZER
  Company Number: US-PFIZER INC-2021807799

PATIENT
  Age: 67 Year
  Sex: Female

DRUGS (5)
  1. PREMARIN [Suspect]
     Active Substance: ESTROGENS, CONJUGATED
     Indication: Urethral stenosis
     Dosage: UNK, 2X/WEEK
  2. PREMARIN [Suspect]
     Active Substance: ESTROGENS, CONJUGATED
     Indication: Prophylaxis urinary tract infection
     Dosage: A COUPLE OF TIMES A WEEK
  3. PREMARIN [Suspect]
     Active Substance: ESTROGENS, CONJUGATED
     Indication: Urethritis
     Dosage: ONCE A DAY (IN THE EVENING) 90 DAYS
     Route: 067
  4. PREMARIN [Suspect]
     Active Substance: ESTROGENS, CONJUGATED
     Dosage: 0.5 G, THREE TIMES A WEEK(EVERY OTHER DAY)
     Route: 067
  5. PREMARIN [Suspect]
     Active Substance: ESTROGENS, CONJUGATED
     Dosage: PLACE 0.5 G EVERY OTHER DAY
     Route: 067

REACTIONS (3)
  - Condition aggravated [Unknown]
  - Off label use [Unknown]
  - Circumstance or information capable of leading to medication error [Unknown]
